FAERS Safety Report 13604030 (Version 2)
Quarter: 2017Q2

REPORT INFORMATION
  Report Type: Report from Study
  Country: US (occurrence: US)
  Receive Date: 20170602
  Receipt Date: 20170614
  Transmission Date: 20170830
  Serious: Yes (Hospitalization)
  Sender: FDA-Public Use
  Company Number: US-ROCHE-1940938

PATIENT
  Age: 13 Year
  Sex: Male
  Weight: 46.7 kg

DRUGS (20)
  1. NUTROPIN AQ [Suspect]
     Active Substance: SOMATROPIN
     Indication: HYPOPITUITARISM
     Dosage: FREQUENCY : UNKNOWN
     Route: 058
  2. TRIAMCINOLONE [Concomitant]
     Active Substance: TRIAMCINOLONE
     Dosage: APPLY TO AFFECTED AREA AS INSTRUCTED.
     Route: 061
  3. CHOLECALCIFEROL [Concomitant]
     Active Substance: CHOLECALCIFEROL
     Route: 065
  4. ALBUTEROL HFA [Concomitant]
     Active Substance: ALBUTEROL SULFATE
     Route: 065
  5. CYPROHEPTADINE. [Concomitant]
     Active Substance: CYPROHEPTADINE
     Dosage: AS NEEDED
     Route: 048
  6. NUTROPIN AQ [Suspect]
     Active Substance: SOMATROPIN
     Indication: GROWTH HORMONE DEFICIENCY
  7. FISH OIL [Concomitant]
     Active Substance: FISH OIL
     Route: 048
  8. CLARITIN (UNITED STATES) [Concomitant]
     Route: 048
  9. VITAMIN B COMPLEX [Concomitant]
     Active Substance: CYANOCOBALAMIN\DEXPANTHENOL\NIACINAMIDE\PYRIDOXINE HYDROCHLORIDE\RIBOFLAVIN 5^-PHOSPHATE SODIUM\THIAMINE HYDROCHLORIDE\VITAMIN B COMPLEX
     Route: 048
  10. GUANFACINE. [Concomitant]
     Active Substance: GUANFACINE
     Dosage: 1 AND 1/2 TABLET TWICE A DAY
     Route: 048
  11. HYDROCORTISONE. [Concomitant]
     Active Substance: HYDROCORTISONE
     Route: 048
  12. FLOVENT HFA [Concomitant]
     Active Substance: FLUTICASONE PROPIONATE
     Route: 065
  13. SENNOSIDES. [Concomitant]
     Active Substance: SENNOSIDES
     Route: 048
  14. KEFLEX [Suspect]
     Active Substance: CEPHALEXIN
     Indication: PRODUCT USED FOR UNKNOWN INDICATION
     Route: 065
  15. SERTRALINE [Concomitant]
     Active Substance: SERTRALINE HYDROCHLORIDE
     Indication: ANXIETY
     Route: 048
  16. ALBUTEROL SULFATE. [Concomitant]
     Active Substance: ALBUTEROL SULFATE
     Dosage: AS NEEDED FOR WHEEZING
     Route: 065
  17. OMEPRAZOLE. [Concomitant]
     Active Substance: OMEPRAZOLE
     Route: 048
  18. HYDROCORTISONE SODIUM SUCCINATE [Concomitant]
     Active Substance: HYDROCORTISONE SODIUM SUCCINATE
     Route: 030
  19. DOCUSATE SODIUM. [Concomitant]
     Active Substance: DOCUSATE SODIUM
     Route: 048
  20. TOBRAMYCIN AND DEXAMETHASONE [Concomitant]
     Active Substance: DEXAMETHASONE\TOBRAMYCIN
     Dosage: PLACE 1-2 DROPS INTO BOTH EYES EVERY 4 HOURS
     Route: 065

REACTIONS (25)
  - Blood cholesterol increased [Unknown]
  - Adrenocorticotropic hormone deficiency [Unknown]
  - Obsessive-compulsive disorder [Unknown]
  - Cough [Unknown]
  - Red cell distribution width increased [Unknown]
  - Snoring [Unknown]
  - Paronychia [Unknown]
  - Fatigue [Unknown]
  - Anxiety [Unknown]
  - Overweight [Recovered/Resolved]
  - Blood creatinine decreased [Unknown]
  - Polydipsia [Recovered/Resolved]
  - Blood albumin increased [Unknown]
  - Strabismus [Unknown]
  - Scoliosis [Unknown]
  - Blood glucose increased [Unknown]
  - Low density lipoprotein increased [Unknown]
  - Gastrooesophageal reflux disease [Unknown]
  - Attention deficit/hyperactivity disorder [Unknown]
  - Hypersensitivity [Unknown]
  - Sleep apnoea syndrome [Unknown]
  - Osteopenia [Unknown]
  - Bronchial hyperreactivity [Recovered/Resolved]
  - Thirst [Unknown]
  - Tic [Unknown]

NARRATIVE: CASE EVENT DATE: 20151218
